FAERS Safety Report 7130615-1 (Version None)
Quarter: 2010Q4

REPORT INFORMATION
  Report Type: 
  Country: None (occurrence: None)
  Receive Date: 20101201
  Receipt Date: 20101116
  Transmission Date: 20110411
  Serious: Yes (Hospitalization, Other)
  Sender: FDA-Public Use
  Company Number: DE-PFIZER INC-2010160421

PATIENT
  Age: 75 Year
  Sex: Female

DRUGS (12)
  1. CORDAREX [Suspect]
     Indication: ARRHYTHMIA
     Dosage: 200 MG, 1X/DAY
     Route: 048
     Dates: start: 20070712, end: 20090423
  2. ALISKIREN [Concomitant]
     Dosage: 300 MG, 1X/DAY
     Dates: start: 20081028
  3. COTAREG ^NOVARTIS^ [Concomitant]
     Dosage: UNK
     Dates: start: 20081028, end: 20090423
  4. ACETYLSALICYLIC ACID [Concomitant]
     Dosage: 100 MG, UNK
     Dates: start: 20050106
  5. BUDESONIDE/FORMOTEROL FUMARATE [Concomitant]
     Dosage: UNK
     Dates: start: 20050106
  6. BISOPROLOL [Concomitant]
     Dosage: UNK
     Dates: start: 20060607
  7. TORASEMIDE [Concomitant]
     Dosage: 20 MG, UNK
     Dates: start: 20080124
  8. LANTUS [Concomitant]
     Dosage: UNK
     Dates: start: 20050106
  9. SIMVASTATIN [Concomitant]
     Dosage: UNK
     Dates: start: 20050104
  10. GLIMEPIRIDE [Concomitant]
     Dosage: 850 MG, UNK
     Dates: start: 20060104
  11. GLUCOBON [Concomitant]
     Dosage: UNK
     Dates: start: 20071024
  12. AMLODIPINE BESILATE [Concomitant]
     Dosage: UNK
     Dates: start: 20090423

REACTIONS (10)
  - ASTHENIA [None]
  - ATRIAL FIBRILLATION [None]
  - ELECTROCARDIOGRAM QRS COMPLEX PROLONGED [None]
  - ELECTROCARDIOGRAM QT PROLONGED [None]
  - EYELID OEDEMA [None]
  - GLYCOSYLATED HAEMOGLOBIN INCREASED [None]
  - HEART RATE DECREASED [None]
  - HYPOTHYROIDISM [None]
  - NAUSEA [None]
  - RENAL FAILURE [None]
